FAERS Safety Report 4725804-7 (Version None)
Quarter: 2005Q3

REPORT INFORMATION
  Report Type: 
  Country: None (occurrence: None)
  Receive Date: 20050722
  Receipt Date: 20050722
  Transmission Date: 20060218
  Serious: Yes (Hospitalization)
  Sender: FDA-Public Use
  Company Number: None

PATIENT
  Age: 23 Year
  Sex: Female

DRUGS (3)
  1. MICONAZOLE [Suspect]
     Indication: VAGINAL DISCHARGE
  2. MICONAZOLE [Suspect]
     Indication: VAGINAL SWELLING
  3. MICONAZOLE [Suspect]
     Indication: VULVOVAGINAL DISCOMFORT

REACTIONS (4)
  - REFUSAL OF TREATMENT BY PATIENT [None]
  - VAGINAL DISCHARGE [None]
  - VAGINAL SWELLING [None]
  - VULVOVAGINAL DISCOMFORT [None]
